FAERS Safety Report 4597812-0 (Version None)
Quarter: 2005Q1

REPORT INFORMATION
  Report Type: 
  Country: None (occurrence: None)
  Receive Date: 20050303
  Receipt Date: 20050225
  Transmission Date: 20050727
  Serious: Yes (Life-Threatening, Hospitalization)
  Sender: FDA-Public Use
  Company Number: US-MERCK-0502USA03602

PATIENT
  Age: 62 Year
  Sex: Male

DRUGS (6)
  1. VIOXX [Suspect]
     Indication: ARTHRITIS
     Route: 048
  2. NEXIUM [Concomitant]
     Route: 065
  3. ALLEGRA [Concomitant]
     Route: 065
  4. TOPROL-XL [Concomitant]
     Route: 065
  5. HYZAAR [Concomitant]
     Route: 048
  6. LIPITOR [Concomitant]
     Route: 065

REACTIONS (3)
  - CARDIAC DISORDER [None]
  - CHEST PAIN [None]
  - NAUSEA [None]
